FAERS Safety Report 7512079-9 (Version None)
Quarter: 2011Q2

REPORT INFORMATION
  Report Type: 
  Country: None (occurrence: None)
  Receive Date: 20110531
  Receipt Date: 20110526
  Transmission Date: 20111010
  Serious: Yes (Other)
  Sender: FDA-Public Use
  Company Number: US-BAYER-2011-045990

PATIENT
  Sex: Female

DRUGS (4)
  1. YAZ [Suspect]
     Dosage: UNK
     Dates: start: 20060101
  2. YAZ [Suspect]
     Dosage: UNK
     Route: 048
     Dates: start: 20030101
  3. YASMIN [Suspect]
     Dosage: UNK
     Route: 048
     Dates: start: 20030101
  4. YASMIN [Suspect]
     Dosage: UNK
     Route: 048
     Dates: start: 20060101

REACTIONS (5)
  - DEFORMITY [None]
  - EMOTIONAL DISTRESS [None]
  - GALLBLADDER DISORDER [None]
  - PAIN [None]
  - INJURY [None]
